FAERS Safety Report 4638218-5 (Version None)
Quarter: 2005Q2

REPORT INFORMATION
  Report Type: 
  Country: None (occurrence: None)
  Receive Date: 20050418
  Receipt Date: 20050404
  Transmission Date: 20051028
  Serious: Yes (Hospitalization, Other)
  Sender: FDA-Public Use
  Company Number: HQWYE941628JAN05

PATIENT
  Age: 48 Year
  Sex: Female
  Weight: 70 kg

DRUGS (13)
  1. RAPAMUNE [Suspect]
     Indication: PROPHYLAXIS AGAINST TRANSPLANT REJECTION
     Dosage: 5 MG 1X PER 1 DAY, ORAL
     Route: 048
     Dates: start: 20050114, end: 20050101
  2. RAPAMUNE [Suspect]
     Indication: IMMUNOSUPPRESSANT DRUG THERAPY
     Dosage: 3 MG 1X PER 1 DAY, ORAL
     Route: 048
     Dates: start: 20050101
  3. NEUTRA-PHOS (POTASSIUM PHOSPHATE DIBASIC/POTASSIUM PHOSPHATE MONOBASIC [Suspect]
     Dates: end: 20050101
  4. PREDNISONE [Suspect]
     Indication: IMMUNOSUPPRESSANT DRUG THERAPY
     Dosage: 10 MG 2X PER 1 DAY, ORAL
     Route: 048
  5. PROGRAF [Suspect]
     Indication: IMMUNOSUPPRESSANT DRUG THERAPY
     Dosage: 3 MG 2X PER 1 DAY, ORAL
     Route: 048
     Dates: start: 20050113, end: 20050101
  6. PROGRAF [Suspect]
     Dosage: 1 MG 2X PER 1 DAY, ORAL
     Route: 048
     Dates: start: 20050101
  7. ACYCLOVIR [Concomitant]
  8. MYCELEX [Concomitant]
  9. PROTONIX [Concomitant]
  10. NORVASC [Concomitant]
  11. REGLAN [Concomitant]
  12. NPH INSULIN [Concomitant]
  13. SCOPOLAMINE (HYOSCINE) [Concomitant]

REACTIONS (10)
  - ATELECTASIS [None]
  - BLOOD GLUCOSE INCREASED [None]
  - BLOOD PHOSPHORUS DECREASED [None]
  - DIARRHOEA [None]
  - DRUG INEFFECTIVE [None]
  - HYPOCALCAEMIA [None]
  - HYPOMAGNESAEMIA [None]
  - LABORATORY TEST ABNORMAL [None]
  - PNEUMONIA HAEMOPHILUS [None]
  - VOMITING [None]
